FAERS Safety Report 8886964 (Version 1)
Quarter: 2012Q4

REPORT INFORMATION
  Report Type: 
  Country: US (occurrence: US)
  Receive Date: 20121105
  Receipt Date: 20121105
  Transmission Date: 20130627
  Serious: Yes (Other)
  Sender: FDA-Public Use
  Company Number: PHEH2012US021241

PATIENT
  Sex: Female

DRUGS (5)
  1. ZOMETA [Suspect]
     Indication: METASTASES TO BONE
     Dosage: 4 mg, QMO
     Route: 042
     Dates: start: 200309, end: 20050203
  2. FENTANYL [Concomitant]
  3. NEURONTIN [Concomitant]
  4. PAXIL [Concomitant]
  5. SIMVASTATIN [Concomitant]

REACTIONS (4)
  - Vaginal infection [Unknown]
  - Staphylococcal infection [Unknown]
  - Oedema peripheral [Unknown]
  - Bone lesion [Unknown]
